FAERS Safety Report 23107363 (Version 1)
Quarter: 2023Q4

REPORT INFORMATION
  Report Type: Spontaneous
  Country: DE (occurrence: DE)
  Receive Date: 20231026
  Receipt Date: 20231026
  Transmission Date: 20240110
  Serious: No
  Sender: FDA-Public Use
  Company Number: DE-ALKEM LABORATORIES LIMITED-DE-ALKEM-2023-10468

PATIENT
  Age: 39 Year
  Sex: Female

DRUGS (5)
  1. LACOSAMIDE [Suspect]
     Active Substance: LACOSAMIDE
     Indication: Partial seizures
     Dosage: UNK
     Route: 065
  2. LACOSAMIDE [Suspect]
     Active Substance: LACOSAMIDE
     Dosage: UNK (RECHALLENGE DOSE)
     Route: 065
  3. BRIVARACETAM [Suspect]
     Active Substance: BRIVARACETAM
     Indication: Partial seizures
     Dosage: UNK
     Route: 065
  4. BRIVARACETAM [Suspect]
     Active Substance: BRIVARACETAM
     Dosage: UNK (RECHALLENGE DOSE)
     Route: 065
  5. CENOBAMATE [Suspect]
     Active Substance: CENOBAMATE
     Indication: Partial seizures
     Dosage: UNK
     Route: 065

REACTIONS (3)
  - Nightmare [Unknown]
  - Vertigo [Unknown]
  - Drug ineffective [Unknown]
